FAERS Safety Report 10743074 (Version 1)
Quarter: 2015Q1

REPORT INFORMATION
  Report Type: Spontaneous
  Country: US (occurrence: US)
  Receive Date: 20150127
  Receipt Date: 20150127
  Transmission Date: 20150721
  Serious: No
  Sender: FDA-Public Use
  Company Number: US-GLAXOSMITHKLINE-A1073678A

PATIENT

DRUGS (2)
  1. NO CONCURRENT MEDICATION [Concomitant]
     Active Substance: UNSPECIFIED INGREDIENT
  2. BUPROPION HYDROCHLORIDE TABLET [Suspect]
     Active Substance: BUPROPION HYDROCHLORIDE
     Route: 048
     Dates: start: 20140502

REACTIONS (9)
  - Nervousness [Recovered/Resolved]
  - Uterine contractions abnormal [Recovering/Resolving]
  - Anxiety [Recovered/Resolved]
  - Tremor [Recovered/Resolved]
  - Limb discomfort [Recovered/Resolved]
  - Euphoric mood [Recovered/Resolved]
  - Depression [Recovered/Resolved]
  - Crying [Recovered/Resolved]
  - Obsessive thoughts [Recovered/Resolved]

NARRATIVE: CASE EVENT DATE: 20140505
